FAERS Safety Report 20040421 (Version 1)
Quarter: 2021Q4

REPORT INFORMATION
  Report Type: Spontaneous
  Country: US (occurrence: None)
  Receive Date: 20211105
  Receipt Date: 20211105
  Transmission Date: 20220303
  Serious: Yes (Hospitalization, Other)
  Sender: FDA-Public Use
  Company Number: None

PATIENT
  Age: 30 Month
  Sex: Female
  Weight: 12.6 kg

DRUGS (3)
  1. ONDANSETRON [Suspect]
     Active Substance: ONDANSETRON
     Indication: Nausea
     Dosage: FREQUENCY : AS NEEDED;?
     Route: 060
     Dates: start: 20211031, end: 20211031
  2. ONDANSETRON [Suspect]
     Active Substance: ONDANSETRON
     Indication: Vomiting
  3. IBUPROFEN [Concomitant]
     Active Substance: IBUPROFEN
     Dates: start: 20211031, end: 20211031

REACTIONS (3)
  - Loss of consciousness [None]
  - Catatonia [None]
  - Unresponsive to stimuli [None]

NARRATIVE: CASE EVENT DATE: 20211031
